FAERS Safety Report 7825456 (Version 3)
Quarter: 2013Q2

REPORT INFORMATION
  Report Type: Spontaneous
  Country: US (occurrence: None)
  Receive Date: 20101130
  Receipt Date: 20121203
  Transmission Date: 20140414
  Serious: Yes (Hospitalization, Other)
  Sender: FDA-Public Use
  Company Number: 2009SP040437

PATIENT
  Age: 30 Year
  Sex: Female
  Weight: 93 kg

DRUGS (8)
  1. NUVARING [Suspect]
     Indication: CONTRACEPTION
     Dosage: ;VAG
     Route: 067
     Dates: start: 200605, end: 20060821
  2. NORVASC [Concomitant]
  3. NORVASC [Concomitant]
  4. FOLIC ACID [Concomitant]
  5. DARVOCET-N 100 [Concomitant]
  6. METHOTREXATE [Concomitant]
  7. ZOLOFT [Concomitant]
  8. METICORTEN (PREDNISONE) TABLET [Concomitant]

REACTIONS (15)
  - VENA CAVA THROMBOSIS [None]
  - PULMONARY INFARCTION [None]
  - VISUAL IMPAIRMENT [None]
  - MENSTRUAL DISORDER [None]
  - PULMONARY EMBOLISM [None]
  - Arthralgia [None]
  - Dyspnoea [None]
  - Lung disorder [None]
  - Trichomoniasis [None]
  - Asthenia [None]
  - Pelvic inflammatory disease [None]
  - Dyspareunia [None]
  - Bronchitis [None]
  - Pneumonia [None]
  - Influenza [None]
